FAERS Safety Report 4507509-0 (Version None)
Quarter: 2004Q4

REPORT INFORMATION
  Report Type: 
  Country: None (occurrence: None)
  Receive Date: 20041123
  Receipt Date: 20041111
  Transmission Date: 20050328
  Serious: Yes (Other)
  Sender: FDA-Public Use
  Company Number: JP-JNJFOC-20040808729

PATIENT
  Sex: Female
  Weight: 42 kg

DRUGS (11)
  1. REMICADE [Suspect]
  2. REMICADE [Suspect]
     Dosage: INFUSION DISCONTINUED AFTER 5 MINUTES.
  3. REMICADE [Suspect]
  4. REMICADE [Suspect]
  5. REMICADE [Suspect]
     Indication: CROHN'S DISEASE
  6. PREDONINE [Concomitant]
  7. RHEUMATREX [Concomitant]
     Route: 049
  8. AZULIFIDINE [Concomitant]
     Route: 049
  9. LENDORMIN [Concomitant]
     Route: 049
  10. HALCION [Concomitant]
  11. PENTASA [Concomitant]
     Indication: CROHN'S DISEASE

REACTIONS (7)
  - ACUTE RESPIRATORY FAILURE [None]
  - HEADACHE [None]
  - HYPOAESTHESIA [None]
  - INFUSION RELATED REACTION [None]
  - MALAISE [None]
  - PRURITUS GENERALISED [None]
  - RHEUMATOID ARTHRITIS [None]
